FAERS Safety Report 13771983 (Version 1)
Quarter: 2017Q3

REPORT INFORMATION
  Report Type: Spontaneous
  Country: TW (occurrence: TW)
  Receive Date: 20170720
  Receipt Date: 20170720
  Transmission Date: 20171127
  Serious: Yes (Death, Hospitalization, Other)
  Sender: FDA-Public Use
  Company Number: TW-ROCHE-1963831

PATIENT
  Age: 79 Year
  Sex: Male
  Weight: 49.7 kg

DRUGS (11)
  1. PREDNISOLONE. [Concomitant]
     Active Substance: PREDNISOLONE
     Indication: HYPERSENSITIVITY
  2. CIMETIDINE [Concomitant]
     Active Substance: CIMETIDINE
     Indication: GASTRIC ULCER
     Route: 048
     Dates: start: 20160525, end: 20170609
  3. MABTHERA [Suspect]
     Active Substance: RITUXIMAB
     Indication: RHEUMATOID ARTHRITIS
     Dosage: ON 06/FEB/2017, THE PATIENT RECEIVED HIS MOST RECENT DOSE OF RITUXIMAB
     Route: 041
     Dates: start: 20141105
  4. METHOTREXATE. [Concomitant]
     Active Substance: METHOTREXATE
     Route: 048
     Dates: start: 20100915, end: 20170609
  5. PREDNISOLONE. [Concomitant]
     Active Substance: PREDNISOLONE
     Indication: INFLAMMATION
     Route: 048
     Dates: start: 20160525, end: 20170609
  6. CIMETIDINE [Concomitant]
     Active Substance: CIMETIDINE
     Indication: DUODENAL ULCER
  7. CELECOXIB. [Concomitant]
     Active Substance: CELECOXIB
     Indication: HYPERTENSION
     Route: 048
     Dates: start: 20160720, end: 20170609
  8. GEFITINIB. [Concomitant]
     Active Substance: GEFITINIB
     Indication: LUNG ADENOCARCINOMA
     Route: 048
     Dates: start: 201705
  9. METHOCARBAMOL. [Concomitant]
     Active Substance: METHOCARBAMOL
     Indication: MUSCLE RELAXANT THERAPY
     Route: 048
     Dates: start: 20170510, end: 20170609
  10. PREDNISOLONE. [Concomitant]
     Active Substance: PREDNISOLONE
     Indication: SHOCK
  11. FOLIC ACID. [Concomitant]
     Active Substance: FOLIC ACID
     Route: 048
     Dates: start: 20100915, end: 20170609

REACTIONS (7)
  - Septic shock [Fatal]
  - Diarrhoea [Not Recovered/Not Resolved]
  - Acute myocardial infarction [Unknown]
  - Asthenia [Not Recovered/Not Resolved]
  - Decreased appetite [Not Recovered/Not Resolved]
  - Pneumonia [Not Recovered/Not Resolved]
  - Acute kidney injury [Unknown]

NARRATIVE: CASE EVENT DATE: 201705
